FAERS Safety Report 7318642-2 (Version None)
Quarter: 2011Q1

REPORT INFORMATION
  Report Type: 
  Country: None (occurrence: None)
  Receive Date: 20110223
  Receipt Date: 20110223
  Transmission Date: 20110831
  Serious: Yes (Other)
  Sender: FDA-Public Use
  Company Number: None

PATIENT
  Age: 32 Year
  Sex: Female
  Weight: 57.6068 kg

DRUGS (2)
  1. MIRENA [Suspect]
  2. PARAGARD T 380A [Concomitant]

REACTIONS (10)
  - ALOPECIA [None]
  - DRY THROAT [None]
  - MOOD SWINGS [None]
  - HYPOTONIA [None]
  - APHONIA [None]
  - DYSPHONIA [None]
  - DRY SKIN [None]
  - BREAST TENDERNESS [None]
  - LOSS OF LIBIDO [None]
  - ACNE CYSTIC [None]
